FAERS Safety Report 6394357-2 (Version None)
Quarter: 2009Q4

REPORT INFORMATION
  Report Type: 
  Country: None (occurrence: None)
  Receive Date: 20091006
  Receipt Date: 20091002
  Transmission Date: 20100525
  Serious: Yes (Hospitalization)
  Sender: FDA-Public Use
  Company Number: GXKR2009DE10876

PATIENT
  Age: 64 Year
  Sex: Female
  Weight: 74.9 kg

DRUGS (12)
  1. ALLOPURINOL [Suspect]
     Indication: HYPERURICAEMIA
     Dosage: 50 MG, QD, ORAL
     Route: 048
     Dates: start: 20090417, end: 20090903
  2. CELLCEPT [Suspect]
     Indication: RENAL TRANSPLANT
     Dosage: 1000 MG, BID, ORAL
     Route: 048
     Dates: start: 20081101
  3. PROGRAF [Suspect]
     Indication: RENAL TRANSPLANT
     Dosage: 1.5-0-0.5, ORAL
     Route: 048
     Dates: start: 20081101
  4. ASPIRIN [Concomitant]
  5. DECORTIN-H (PREDNISOLONE) [Concomitant]
  6. EINSALPHA (ALFACALCIDOL) [Concomitant]
  7. HALCION [Concomitant]
  8. LANSOPRAZOLE [Concomitant]
  9. METOHEXAL (METOPROLOL TARTRATE) [Concomitant]
  10. PANTOPRAZOLE SODIUM [Concomitant]
  11. PRESOMEN (ESTROGENS CONJUGATED) [Concomitant]
  12. TORSEMIDE [Concomitant]

REACTIONS (2)
  - C-REACTIVE PROTEIN INCREASED [None]
  - LIVER FUNCTION TEST ABNORMAL [None]
